FAERS Safety Report 9518682 (Version 1)
Quarter: 2013Q1

REPORT INFORMATION
  Report Type: Spontaneous
  Country: US (occurrence: None)
  Receive Date: 20130305
  Receipt Date: 20130305
  Transmission Date: 20140127
  Serious: Yes (Other)
  Sender: FDA-Public Use
  Company Number: 163-21880-12073081

PATIENT
  Age: FEW None
  Sex: Female

DRUGS (5)
  1. REVLIMID [Suspect]
     Indication: MYELODYSPLASTIC SYNDROME
     Dosage: 5 MG, 21 IN 21 D, PO
     Route: 048
     Dates: start: 20111208
  2. FOLIC ACID (FOLIC ACID) (UNKNOWN) [Concomitant]
  3. VITAMN B6 (PYRIDOXINE HYDROCHLORIDE) (UNKNOWN) [Concomitant]
  4. VITAMIN B12 (CYANOCOBALAMIN) (UNKNOWN) [Concomitant]
  5. BACTRIM DS (BACTRIM) (UNKNOWN) [Concomitant]

REACTIONS (7)
  - White blood cell count increased [None]
  - Platelet count decreased [None]
  - Pollakiuria [None]
  - Contusion [None]
  - Joint swelling [None]
  - Urinary tract infection [None]
  - Asthenia [None]
